FAERS Safety Report 6228281-2 (Version None)
Quarter: 2009Q2

REPORT INFORMATION
  Report Type: 
  Country: None (occurrence: None)
  Receive Date: 20090612
  Receipt Date: 20090603
  Transmission Date: 20091009
  Serious: Yes (Other)
  Sender: FDA-Public Use
  Company Number: PHHY2009EG21649

PATIENT
  Age: 75 Year
  Sex: Male

DRUGS (6)
  1. ZOMETA [Suspect]
     Indication: OSTEOPOROSIS
     Dosage: 4ML, UNK
     Route: 042
     Dates: start: 20090423
  2. ZOFRAN [Concomitant]
     Dosage: UNK
     Dates: start: 20090423
  3. ZANTAC [Concomitant]
     Dosage: UNK
     Dates: start: 20090423
  4. DECADRONE [Concomitant]
     Dosage: UNK
     Dates: start: 20090423
  5. AVIAL [Concomitant]
     Dosage: UNK
     Dates: start: 20090423
  6. DEXTROSE [Concomitant]
     Dosage: UNK
     Dates: start: 20090423

REACTIONS (9)
  - DIZZINESS [None]
  - FATIGUE [None]
  - LEUKOCYTOSIS [None]
  - LYMPHOCYTOSIS [None]
  - MYALGIA [None]
  - PYREXIA [None]
  - RHEUMATOID ARTHRITIS [None]
  - VOMITING [None]
  - WEIGHT DECREASED [None]
